FAERS Safety Report 7688274-5 (Version None)
Quarter: 2011Q3

REPORT INFORMATION
  Report Type: 
  Country: None (occurrence: None)
  Receive Date: 20110817
  Receipt Date: 20100812
  Transmission Date: 20111222
  Serious: No
  Sender: FDA-Public Use
  Company Number: US-KINGPHARMUSA00001-K201001022

PATIENT
  Sex: Female

DRUGS (2)
  1. LEVOTHROID [Suspect]
     Dosage: 50 MCG, QD
  2. CYTOMEL [Suspect]
     Dosage: 5 MCG, QD

REACTIONS (2)
  - DEPRESSED MOOD [None]
  - FATIGUE [None]
